FAERS Safety Report 6178182-3 (Version None)
Quarter: 2009Q2

REPORT INFORMATION
  Report Type: 
  Country: None (occurrence: None)
  Receive Date: 20090504
  Receipt Date: 20090424
  Transmission Date: 20091009
  Serious: Yes (Hospitalization)
  Sender: FDA-Public Use
  Company Number: PHHY2009GB16225

PATIENT
  Sex: Male

DRUGS (2)
  1. PROLEUKIN [Suspect]
     Indication: RENAL CELL CARCINOMA
     Dosage: UNK
     Dates: end: 20090410
  2. PROLEUKIN [Suspect]
     Indication: METASTASIS

REACTIONS (1)
  - HYPERKALAEMIA [None]
